FAERS Safety Report 25333695 (Version 1)
Quarter: 2025Q2

REPORT INFORMATION
  Report Type: Spontaneous
  Country: US (occurrence: US)
  Receive Date: 20250520
  Receipt Date: 20250520
  Transmission Date: 20250717
  Serious: No
  Sender: ROCHE
  Company Number: US-ROCHE-10000280440

PATIENT
  Age: 65 Year
  Sex: Female
  Weight: 66.67 kg

DRUGS (2)
  1. ACTEMRA [Suspect]
     Active Substance: TOCILIZUMAB
     Indication: Rheumatoid arthritis
     Route: 058
     Dates: start: 202411
  2. LOVENOX [Concomitant]
     Active Substance: ENOXAPARIN SODIUM

REACTIONS (3)
  - Rheumatoid arthritis [Recovered/Resolved]
  - Device malfunction [Unknown]
  - Inappropriate schedule of product administration [Unknown]

NARRATIVE: CASE EVENT DATE: 20250401
